FAERS Safety Report 7476841-3 (Version None)
Quarter: 2011Q2

REPORT INFORMATION
  Report Type: 
  Country: None (occurrence: None)
  Receive Date: 20110512
  Receipt Date: 20110302
  Transmission Date: 20111010
  Serious: Yes (Life-Threatening, Hospitalization, Other)
  Sender: FDA-Public Use
  Company Number: PHHY2009DE31409

PATIENT
  Sex: Female
  Weight: 80 kg

DRUGS (4)
  1. BISOPROLOL FUMARATE [Concomitant]
     Indication: HYPERTENSION
     Dosage: 5 MG, DAILY
     Route: 048
     Dates: start: 20090415, end: 20090415
  2. HORMONES [Concomitant]
  3. MAGNETRANS [Concomitant]
     Indication: MYOPATHY
     Dosage: 10 MMOL, UNK
     Dates: start: 20090415, end: 20090415
  4. TASIGNA [Suspect]
     Indication: CHRONIC MYELOID LEUKAEMIA
     Dosage: 400 MG, BID
     Route: 048
     Dates: start: 20090203

REACTIONS (13)
  - PAIN IN EXTREMITY [None]
  - OPTIC NEURITIS [None]
  - MYOCARDIAL INFARCTION [None]
  - NECK PAIN [None]
  - CORONARY ARTERY STENOSIS [None]
  - TROPONIN INCREASED [None]
  - VISUAL IMPAIRMENT [None]
  - CORONARY ARTERY DISEASE [None]
  - CHEST PAIN [None]
  - RETINAL HAEMORRHAGE [None]
  - MENINGIOMA [None]
  - DIPLOPIA [None]
  - DRY SKIN [None]
